FAERS Safety Report 17011068 (Version 1)
Quarter: 2019Q4

REPORT INFORMATION
  Report Type: Spontaneous
  Country: IT (occurrence: IT)
  Receive Date: 20191108
  Receipt Date: 20191108
  Transmission Date: 20200122
  Serious: Yes (Other)
  Sender: FDA-Public Use
  Company Number: IT-ASTRAZENECA-2019SF55686

PATIENT
  Sex: Male

DRUGS (1)
  1. DURVALUMAB. [Suspect]
     Active Substance: DURVALUMAB
     Route: 042
     Dates: start: 20190507, end: 20190709

REACTIONS (2)
  - Myelodysplastic syndrome [Unknown]
  - Therapy partial responder [Unknown]
